FAERS Safety Report 7651645-7 (Version None)
Quarter: 2011Q3

REPORT INFORMATION
  Report Type: 
  Country: None (occurrence: None)
  Receive Date: 20110802
  Receipt Date: 20110705
  Transmission Date: 20111222
  Serious: No
  Sender: FDA-Public Use
  Company Number: US-BAYER-2011-059842

PATIENT
  Age: 66 Year
  Sex: Female
  Weight: 61 kg

DRUGS (7)
  1. CRESTOR [Concomitant]
  2. LISINOPRIL [Concomitant]
  3. ATENOLOL [Concomitant]
  4. NIACIN [Concomitant]
  5. ALEVE (CAPLET) [Suspect]
     Indication: BACK PAIN
     Dosage: 1 DF, BID
     Route: 048
     Dates: start: 20110702, end: 20110702
  6. LEVOTHYROXINE SODIUM [Concomitant]
  7. DRONEDARONE [Concomitant]

REACTIONS (2)
  - RASH [None]
  - RASH PAPULAR [None]
